FAERS Safety Report 13826729 (Version 1)
Quarter: 2017Q3

REPORT INFORMATION
  Report Type: Spontaneous
  Country: US (occurrence: US)
  Receive Date: 20170802
  Receipt Date: 20170802
  Transmission Date: 20171127
  Serious: No
  Sender: FDA-Public Use
  Company Number: US-ROCHE-643926

PATIENT
  Age: 56 Year
  Sex: Female

DRUGS (6)
  1. MULTIVITAMIN NOS [Concomitant]
     Active Substance: VITAMINS
     Dosage: DRUG NAME: MULTIVITAMIN
     Route: 065
  2. LEXAPRO [Concomitant]
     Active Substance: ESCITALOPRAM OXALATE
     Route: 065
  3. BONIVA [Suspect]
     Active Substance: IBANDRONATE SODIUM
     Indication: OSTEOPENIA
     Route: 048
  4. GLUCOSAMINE SULFATE [Concomitant]
     Active Substance: GLUCOSAMINE SULFATE
     Dosage: DRUG NAME: GLUCOSAMINE CHONDROITIN
     Route: 065
  5. CALCIUM [Concomitant]
     Active Substance: CALCIUM
     Route: 065
  6. CLIMARA [Concomitant]
     Active Substance: ESTRADIOL
     Dosage: DRUG NAME: CLIMARA PATCH
     Route: 065

REACTIONS (2)
  - No adverse event [Unknown]
  - Wrong technique in product usage process [Unknown]
